FAERS Safety Report 5172283-4 (Version None)
Quarter: 2006Q4

REPORT INFORMATION
  Report Type: 
  Country: None (occurrence: None)
  Receive Date: 20061205
  Receipt Date: 20061120
  Transmission Date: 20070319
  Serious: Yes (Life-Threatening, Hospitalization)
  Sender: FDA-Public Use
  Company Number: US-2006-033622

PATIENT
  Age: 44 Year
  Sex: Female
  Weight: 82 kg

DRUGS (1)
  1. ULTRAVIST 300 [Suspect]
     Indication: COMPUTERISED TOMOGRAM ABDOMEN
     Dosage: 95 ML, 1 DOSE, INTRAVENOUS
     Route: 042
     Dates: start: 20060919, end: 20060919

REACTIONS (3)
  - DYSPNOEA [None]
  - POST PROCEDURAL COMPLICATION [None]
  - SWELLING [None]
